FAERS Safety Report 5253482-X (Version None)
Quarter: 2007Q1

REPORT INFORMATION
  Report Type: 
  Country: None (occurrence: None)
  Receive Date: 20070301
  Receipt Date: 20070222
  Transmission Date: 20070707
  Serious: Yes (Hospitalization)
  Sender: FDA-Public Use
  Company Number: US-BOEHRINGER INGELHEIM PHARMACEUTICALS, INC.-2007-BP-02511BP

PATIENT
  Sex: Female

DRUGS (6)
  1. MIRAPEX [Suspect]
     Indication: RESTLESS LEGS SYNDROME
     Route: 048
  2. BIAXIN [Suspect]
  3. BENADRYL [Suspect]
     Route: 042
     Dates: start: 20070220, end: 20070220
  4. CELEXA [Concomitant]
  5. TRAZODONE HCL [Concomitant]
  6. AMBIEN [Concomitant]

REACTIONS (2)
  - GRAND MAL CONVULSION [None]
  - MENTAL STATUS CHANGES [None]
